FAERS Safety Report 26020651 (Version 3)
Quarter: 2025Q4

REPORT INFORMATION
  Report Type: Report from Study
  Country: EU (occurrence: EU)
  Receive Date: 20251110
  Receipt Date: 20251127
  Transmission Date: 20260117
  Serious: Yes (Other)
  Sender: BOEHRINGER INGELHEIM
  Company Number: EU-BoehringerIngelheim-2025-BI-105252

PATIENT
  Age: 65 Year
  Sex: Female
  Weight: 68 kg

DRUGS (2)
  1. ZONGERTINIB [Suspect]
     Active Substance: ZONGERTINIB
     Indication: Non-small cell lung cancer
     Dosage: AFTER MULTIPLE LINES OF THERAPY, THE PATIENT HAD RECEIVED ZONGERTINIB 120MG DAILY SINCE THE END OF DECEMBER 2023.??THE TREATMENT WAS DISCONTINUED WITH THE DIAGNOSIS OF DISEASE PROGRESSION IN THE LAST WEEK OF OCTOBER. SO THE END DATE IS THE END OF OCTOBER, BUT EXACT DATE IS  UNKNOWN
     Dates: start: 202312, end: 202510
  2. ZONGERTINIB [Suspect]
     Active Substance: ZONGERTINIB
     Indication: HER2 mutant non-small cell lung cancer

REACTIONS (1)
  - Malignant neoplasm progression [Unknown]

NARRATIVE: CASE EVENT DATE: 20251001
